FAERS Safety Report 10598172 (Version 1)
Quarter: 2014Q4

REPORT INFORMATION
  Report Type: Spontaneous
  Country: GB (occurrence: None)
  Receive Date: 20141119
  Receipt Date: 20141119
  Transmission Date: 20150529
  Serious: Yes (Other)
  Sender: FDA-Public Use
  Company Number: IPC201411-000600

PATIENT
  Age: 35 Year
  Sex: Female

DRUGS (5)
  1. ONDANSETRON (ONDANSETRON) (ONDANSETRON) [Suspect]
     Active Substance: ONDANSETRON
     Indication: ANAESTHETIC PREMEDICATION
     Route: 042
  2. DIAMORPHINE(DIARMORPHINE) [Concomitant]
  3. PHENYLEPHRINE [Suspect]
     Active Substance: PHENYLEPHRINE\PHENYLEPHRINE HYDROCHLORIDE
     Dosage: 67 MICROG PER MIN
  4. BUPIVACAINE(BUPIVACAINE)(BUPIVACAINE) [Concomitant]
  5. CEFUROXIME(CEFUROXIME)(CEFUROXIME) [Concomitant]

REACTIONS (3)
  - Ventricular tachycardia [None]
  - Caesarean section [None]
  - Exposure during pregnancy [None]
